FAERS Safety Report 9225025 (Version 1)
Quarter: 2013Q1

REPORT INFORMATION
  Report Type: Spontaneous
  Country: US (occurrence: None)
  Receive Date: 20120912
  Receipt Date: 20120912
  Transmission Date: 20140127
  Serious: Yes (Hospitalization)
  Sender: FDA-Public Use
  Company Number: 2012SP025400

PATIENT
  Age: 61 Year
  Sex: Male

DRUGS (3)
  1. VICTRELIS [Suspect]
     Indication: HEPATITIS C
     Route: 048
     Dates: start: 20120404
  2. PEGASYS [Suspect]
     Indication: HEPATITIS C
     Dates: start: 20120301
  3. RIBAPAK [Suspect]
     Indication: HEPATITIS C
     Dates: start: 20120301

REACTIONS (5)
  - Anaemia [None]
  - Vomiting [None]
  - Nausea [None]
  - Weight decreased [None]
  - Dysgeusia [None]
